FAERS Safety Report 25669608 (Version 1)
Quarter: 2025Q3

REPORT INFORMATION
  Report Type: Spontaneous
  Country: KZ (occurrence: KZ)
  Receive Date: 20250812
  Receipt Date: 20250812
  Transmission Date: 20251020
  Serious: Yes (Hospitalization)
  Sender: REGENERON
  Company Number: KZ-BAYER-2025A105549

PATIENT
  Age: 73 Year
  Sex: Female

DRUGS (2)
  1. EYLEA [Suspect]
     Active Substance: AFLIBERCEPT
     Indication: Neovascular age-related macular degeneration
     Route: 031
     Dates: start: 20250701
  2. EYLEA [Suspect]
     Active Substance: AFLIBERCEPT
     Route: 031
     Dates: start: 20250801

REACTIONS (5)
  - Visual impairment [Recovering/Resolving]
  - Ocular hyperaemia [Recovering/Resolving]
  - Anterior chamber flare [Recovering/Resolving]
  - Ocular hyperaemia [Unknown]
  - Anterior chamber flare [Unknown]

NARRATIVE: CASE EVENT DATE: 20250702
